FAERS Safety Report 6683358-2 (Version None)
Quarter: 2010Q2

REPORT INFORMATION
  Report Type: 
  Country: None (occurrence: None)
  Receive Date: 20100415
  Receipt Date: 20100413
  Transmission Date: 20101027
  Serious: Yes (Death, Hospitalization)
  Sender: FDA-Public Use
  Company Number: US-WYE-H12224809

PATIENT
  Age: 57 Year
  Sex: Female
  Weight: 120.8 kg

DRUGS (17)
  1. TORISEL [Suspect]
     Indication: METASTATIC UTERINE CANCER
     Route: 042
     Dates: start: 20090428, end: 20090630
  2. LOVENOX [Concomitant]
  3. NEXIUM [Concomitant]
  4. TRICOR [Concomitant]
  5. HYCODAN [Concomitant]
  6. INSULIN [Concomitant]
  7. IPRATROPIUM BROMIDE [Concomitant]
  8. CICLESONIDE [Concomitant]
  9. LOVAZA [Concomitant]
  10. PILOCARPINE HYDROCHLORIDE [Concomitant]
  11. ACTOS [Concomitant]
  12. ROPINIROLE [Concomitant]
  13. VORICONAZOLE [Concomitant]
  14. AMBIEN [Concomitant]
  15. DIOVAN [Concomitant]
     Dosage: UNKNOWN
     Dates: start: 20090616, end: 20090707
  16. BACTRIM [Concomitant]
     Dosage: UNKNOWN
     Dates: start: 20090609, end: 20090707
  17. TESSALON [Concomitant]

REACTIONS (3)
  - MALIGNANT PLEURAL EFFUSION [None]
  - PNEUMONITIS [None]
  - RENAL FAILURE [None]
